FAERS Safety Report 4576915-0 (Version None)
Quarter: 2005Q1

REPORT INFORMATION
  Report Type: 
  Country: None (occurrence: None)
  Receive Date: 20050208
  Receipt Date: 20050202
  Transmission Date: 20050727
  Serious: Yes (Death)
  Sender: FDA-Public Use
  Company Number: 05-01-0148

PATIENT
  Age: 80 Year
  Sex: Male

DRUGS (1)
  1. CLOZAPINE TABLETS - IVAX PHARMACEUTICALS, INC. [Suspect]
     Indication: BIPOLAR DISORDER
     Dosage: 25-100MG QD ORAL
     Route: 048
     Dates: start: 19981201, end: 20041201

REACTIONS (2)
  - PNEUMONIA [None]
  - RESPIRATORY FAILURE [None]
